FAERS Safety Report 6582684-5 (Version None)
Quarter: 2010Q1

REPORT INFORMATION
  Report Type: 
  Country: None (occurrence: None)
  Receive Date: 20100216
  Receipt Date: 20100205
  Transmission Date: 20100710
  Serious: Yes (Hospitalization)
  Sender: FDA-Public Use
  Company Number: FR-BRISTOL-MYERS SQUIBB COMPANY-14975833

PATIENT
  Age: 56 Year
  Sex: Male

DRUGS (7)
  1. ERBITUX [Suspect]
     Indication: TONGUE NEOPLASM MALIGNANT STAGE UNSPECIFIED
     Dosage: 24AUG-24AUG09,31AUG-31AUG09:360 MG, DAY 21 OF THIRD COURSE
     Route: 042
     Dates: start: 20090817, end: 20090831
  2. CISPLATIN [Suspect]
     Indication: TONGUE NEOPLASM MALIGNANT STAGE UNSPECIFIED
     Dosage: DAY 1 OF THIRD COURSE
     Route: 042
     Dates: start: 20090817, end: 20090817
  3. FLUOROURACIL [Suspect]
     Indication: TONGUE NEOPLASM MALIGNANT STAGE UNSPECIFIED
     Dosage: DAY 1 + DAY 2 OF THIRD COURSE
     Route: 042
     Dates: start: 20090817, end: 20090818
  4. POLARAMINE [Suspect]
     Indication: PREMEDICATION
     Route: 042
     Dates: start: 20090817
  5. METHYLPREDNISOLONE [Suspect]
     Indication: PREMEDICATION
     Route: 042
     Dates: start: 20090817
  6. ZOPHREN [Suspect]
     Indication: PREMEDICATION
     Route: 042
     Dates: start: 20090817
  7. EMEND [Suspect]
     Indication: PREMEDICATION
     Dosage: 125MG:19AUG09- ONG
     Route: 048
     Dates: start: 20090818, end: 20090818

REACTIONS (3)
  - AMAUROSIS [None]
  - GLARE [None]
  - MALAISE [None]
